FAERS Safety Report 16107503 (Version 1)
Quarter: 2019Q1

REPORT INFORMATION
  Report Type: Spontaneous
  Country: DE (occurrence: DE)
  Receive Date: 20190322
  Receipt Date: 20190322
  Transmission Date: 20190418
  Serious: Yes (Other)
  Sender: FDA-Public Use
  Company Number: DE-009507513-1903DEU007435

PATIENT
  Age: 24 Year
  Sex: Female

DRUGS (1)
  1. NUVARING [Suspect]
     Active Substance: ETHINYL ESTRADIOL\ETONOGESTREL
     Dosage: UNK
     Dates: start: 20181109, end: 20181111

REACTIONS (6)
  - Haemorrhage [Unknown]
  - Burning sensation [Unknown]
  - Genital pain [Unknown]
  - Vulvovaginal injury [Unknown]
  - Device breakage [Unknown]
  - Pain [Unknown]

NARRATIVE: CASE EVENT DATE: 20181111
